FAERS Safety Report 22677689 (Version 5)
Quarter: 2024Q4

REPORT INFORMATION
  Report Type: Spontaneous
  Country: US (occurrence: US)
  Receive Date: 20230706
  Receipt Date: 20241218
  Transmission Date: 20250115
  Serious: Yes (Hospitalization, Other)
  Sender: PFIZER
  Company Number: US-PFIZER INC-PV202300097803

PATIENT
  Age: 75 Year
  Sex: Female
  Weight: 66.213 kg

DRUGS (3)
  1. IBRANCE [Suspect]
     Active Substance: PALBOCICLIB
     Indication: Breast cancer female
     Dosage: 100 MG, CYCLIC (1 CAPSULE DAILY (WITH BREAKFAST) / 3 WEEKS ON, 1 WEEK OFF)
     Route: 048
  2. IBRANCE [Suspect]
     Active Substance: PALBOCICLIB
     Dosage: 75 MG, CYCLIC (DAILY FOR 21 DAYS, WITH 7 DAYS OFF, EVERY 28 DAYS), WITH BREAKFAST
     Route: 048
  3. IBRANCE [Suspect]
     Active Substance: PALBOCICLIB
     Dosage: 75 MG, CYCLIC (1 CAPSULE QOD (EVERY OTHER DAY) 21 DAYS ON, 7 DAYS OFF)

REACTIONS (7)
  - Spinal fracture [Unknown]
  - Back pain [Unknown]
  - Fall [Unknown]
  - Rib fracture [Unknown]
  - Neoplasm progression [Unknown]
  - Off label use [Unknown]
  - Product prescribing error [Unknown]

NARRATIVE: CASE EVENT DATE: 20220101
